FAERS Safety Report 6905167-9 (Version None)
Quarter: 2010Q3

REPORT INFORMATION
  Report Type: 
  Country: None (occurrence: None)
  Receive Date: 20100804
  Receipt Date: 20100309
  Transmission Date: 20110219
  Serious: No
  Sender: FDA-Public Use
  Company Number: US-PFIZER INC-2009156689

PATIENT
  Sex: Male
  Weight: 85.261 kg

DRUGS (4)
  1. LYRICA [Suspect]
     Indication: HYPOAESTHESIA
     Dosage: 75 MG, 1X/DAY
     Dates: start: 20081201
  2. GLIPIZIDE [Suspect]
     Indication: TYPE 2 DIABETES MELLITUS
     Dosage: 20 MG, 2X/DAY
  3. AVANDIA [Suspect]
     Indication: TYPE 2 DIABETES MELLITUS
     Dates: start: 20081201, end: 20090101
  4. LOSARTAN [Concomitant]
     Dosage: UNK

REACTIONS (3)
  - BLOOD GLUCOSE INCREASED [None]
  - MALAISE [None]
  - WEIGHT INCREASED [None]
